FAERS Safety Report 19814876 (Version 1)
Quarter: 2021Q3

REPORT INFORMATION
  Report Type: Spontaneous
  Country: US (occurrence: US)
  Receive Date: 20210908
  Receipt Date: 20210908
  Transmission Date: 20211014
  Serious: Yes (Other)
  Sender: FDA-Public Use
  Company Number: None

PATIENT
  Age: 71 Year
  Sex: Female
  Weight: 58.06 kg

DRUGS (2)
  1. CLARITIN [Suspect]
     Active Substance: LORATADINE
     Indication: HYPERSENSITIVITY
     Route: 060
     Dates: start: 20210101
  2. CLARITIN [Suspect]
     Active Substance: LORATADINE
     Indication: IMMUNOGLOBULIN THERAPY
     Route: 060
     Dates: start: 20210101

REACTIONS (3)
  - Ear discomfort [None]
  - Tinnitus [None]
  - Headache [None]

NARRATIVE: CASE EVENT DATE: 20210901
